FAERS Safety Report 7972510-1 (Version None)
Quarter: 2011Q4

REPORT INFORMATION
  Report Type: 
  Country: None (occurrence: None)
  Receive Date: 20111122
  Receipt Date: 20110620
  Transmission Date: 20120403
  Serious: No
  Sender: FDA-Public Use
  Company Number: PHHY2011US39706

PATIENT
  Age: 50 Year
  Sex: Female

DRUGS (1)
  1. GILENYA [Suspect]
     Indication: RELAPSING-REMITTING MULTIPLE SCLEROSIS
     Dosage: 0.5 MG, QD, ORAL
     Route: 048
     Dates: start: 20110311

REACTIONS (8)
  - SKIN WARM [None]
  - CHEST PAIN [None]
  - DRY SKIN [None]
  - FEELING JITTERY [None]
  - HEART RATE DECREASED [None]
  - HEADACHE [None]
  - NERVOUSNESS [None]
  - FATIGUE [None]
